FAERS Safety Report 8429326 (Version 2)
Quarter: 2013Q1

REPORT INFORMATION
  Report Type: Spontaneous
  Country: US (occurrence: US)
  Receive Date: 20120227
  Receipt Date: 20130212
  Transmission Date: 20140127
  Serious: Yes (Other)
  Sender: FDA-Public Use
  Company Number: US-GENZYME-CAMP-1002135

PATIENT
  Sex: Male

DRUGS (2)
  1. CAMPATH [Suspect]
     Indication: MULTIPLE SCLEROSIS
     Dosage: UNK, DOSE GIVEN EVERY OTHER YEAR
     Route: 065
     Dates: start: 2007
  2. CAMPATH [Suspect]
     Dosage: UNK
     Route: 065
     Dates: end: 2009

REACTIONS (2)
  - Paralysis [Not Recovered/Not Resolved]
  - Off label use [Unknown]
